FAERS Safety Report 19120515 (Version 1)
Quarter: 2021Q2

REPORT INFORMATION
  Report Type: Spontaneous
  Country: US (occurrence: US)
  Receive Date: 20210410
  Receipt Date: 20210410
  Transmission Date: 20210717
  Serious: Yes (Hospitalization)
  Sender: FDA-Public Use
  Company Number: None

PATIENT
  Age: 60 Year
  Sex: Female

DRUGS (13)
  1. COVID?19 VACCINE NOS. [Suspect]
     Active Substance: COVID-19 VACCINE NOS
  2. GABAPENTIN. [Concomitant]
     Active Substance: GABAPENTIN
  3. NITROFURAN [Concomitant]
     Active Substance: NITROFURANTOIN
  4. PROTONIX [Concomitant]
     Active Substance: PANTOPRAZOLE SODIUM
  5. AIMOVIG [Suspect]
     Active Substance: ERENUMAB-AOOE
     Indication: MIGRAINE
     Dosage: ?          OTHER FREQUENCY:MONTHLY;?
     Route: 058
     Dates: start: 20200630
  6. MELOXICAM. [Concomitant]
     Active Substance: MELOXICAM
  7. MYRBETRIQ [Concomitant]
     Active Substance: MIRABEGRON
  8. PLAQUENIL [Concomitant]
     Active Substance: HYDROXYCHLOROQUINE SULFATE
  9. METHOCARBAM [Concomitant]
     Active Substance: METHOCARBAMOL
  10. AMITRIPTYLINE [Concomitant]
     Active Substance: AMITRIPTYLINE
  11. ASPIRIN. [Concomitant]
     Active Substance: ASPIRIN
  12. DULOXETINE. [Concomitant]
     Active Substance: DULOXETINE
  13. TRELEGY ELLIPTA [Concomitant]
     Active Substance: FLUTICASONE FUROATE\UMECLIDINIUM BROMIDE\VILANTEROL TRIFENATATE

REACTIONS (2)
  - Therapy interrupted [None]
  - Headache [None]

NARRATIVE: CASE EVENT DATE: 20210403
